FAERS Safety Report 4868777-9 (Version None)
Quarter: 2005Q4

REPORT INFORMATION
  Report Type: 
  Country: None (occurrence: None)
  Receive Date: 20051223
  Receipt Date: 20051209
  Transmission Date: 20060501
  Serious: Yes (Hospitalization)
  Sender: FDA-Public Use
  Company Number: 220451

PATIENT
  Age: 73 Year
  Sex: Female

DRUGS (6)
  1. AVASTIN [Suspect]
     Indication: COLON CANCER
     Dosage: 261 MG, Q2W, INTRAVENOUS
     Route: 042
     Dates: start: 20050602
  2. OXALIPLATIN(OXALIPLATIN) [Suspect]
     Indication: COLON CANCER
     Dosage: Q2W, INTRAVENOUS
     Route: 042
     Dates: start: 20050602
  3. FLUOROURACIL [Suspect]
     Indication: COLON CANCER
     Dosage: 560 MG, Q2W, INTRAVENOUS  : 840 MG, Q2W, INTRAVENOUS
     Route: 042
     Dates: start: 20050602
  4. LEUCOVORIN CALCIUM [Suspect]
     Indication: COLON CANCER
     Dosage: 280 MG, Q2W, INTRAVENOUS
     Route: 042
     Dates: start: 20050602
  5. ONDANSETRON [Concomitant]
  6. PROCHLORPERAZINE [Concomitant]

REACTIONS (2)
  - DEHYDRATION [None]
  - FAILURE TO THRIVE [None]
